FAERS Safety Report 7995164-7 (Version None)
Quarter: 2011Q4

REPORT INFORMATION
  Report Type: 
  Country: None (occurrence: None)
  Receive Date: 20111220
  Receipt Date: 20111209
  Transmission Date: 20120403
  Serious: Yes (Death, Hospitalization)
  Sender: FDA-Public Use
  Company Number: GR-GLAXOSMITHKLINE-B0768887A

PATIENT
  Sex: Male
  Weight: 79.5 kg

DRUGS (7)
  1. INNOHEP [Concomitant]
     Indication: AORTIC OCCLUSION
     Dosage: 3.5MG PER DAY
     Route: 042
     Dates: start: 20110815, end: 20111201
  2. SIMVASTATIN [Concomitant]
     Indication: AORTIC OCCLUSION
     Dosage: 20MG PER DAY
     Route: 048
     Dates: start: 19950615, end: 20111201
  3. UNKNOWN DRUG [Concomitant]
     Dates: end: 20111201
  4. TYKERB [Suspect]
     Indication: LUNG CANCER METASTATIC
     Dosage: 1250MG PER DAY
     Route: 048
     Dates: start: 20111117
  5. LOSARTAN POTASSIUM [Concomitant]
     Indication: AORTIC OCCLUSION
     Dosage: 25MG PER DAY
     Route: 048
     Dates: start: 19950615
  6. UNKNOWN DRUG [Concomitant]
     Dates: end: 20111201
  7. DEXAMETHASONE [Concomitant]
     Indication: METASTASES TO CENTRAL NERVOUS SYSTEM
     Dosage: 10ML TWICE PER DAY
     Route: 042
     Dates: start: 20111018, end: 20111201

REACTIONS (3)
  - ADVERSE EVENT [None]
  - MUCOSAL INFLAMMATION [None]
  - DIARRHOEA [None]
